FAERS Safety Report 15714503 (Version 2)
Quarter: 2019Q1

REPORT INFORMATION
  Report Type: Spontaneous
  Country: BE (occurrence: BE)
  Receive Date: 20181212
  Receipt Date: 20190118
  Transmission Date: 20190417
  Serious: Yes (Hospitalization, Other)
  Sender: FDA-Public Use
  Company Number: BE-JNJFOC-20181211906

PATIENT
  Sex: Female
  Weight: 101 kg

DRUGS (9)
  1. EZETROL [Concomitant]
     Active Substance: EZETIMIBE
     Route: 048
  2. CLEXANE [Concomitant]
     Active Substance: ENOXAPARIN SODIUM
     Route: 065
  3. ALDACTAZINE [Concomitant]
     Active Substance: ALTHIAZIDE\SPIRONOLACTONE
     Route: 048
  4. PANTOMED D [Concomitant]
     Route: 054
  5. XALATAN [Concomitant]
     Active Substance: LATANOPROST
     Route: 048
  6. NOBITEN [Concomitant]
     Active Substance: NEBIVOLOL
     Route: 065
  7. OLMETEC [Concomitant]
     Active Substance: OLMESARTAN MEDOXOMIL
     Route: 048
  8. XARELTO [Suspect]
     Active Substance: RIVAROXABAN
     Indication: PRODUCT USED FOR UNKNOWN INDICATION
     Route: 048
     Dates: start: 20070805
  9. GLUCOPHAGE [Concomitant]
     Active Substance: METFORMIN HYDROCHLORIDE
     Route: 048

REACTIONS (7)
  - Atrial appendage closure [Unknown]
  - Fatigue [Unknown]
  - Acute kidney injury [Unknown]
  - Iron deficiency [Unknown]
  - Anaemia [Unknown]
  - Hyperhidrosis [Unknown]
  - Muscle spasms [Unknown]

NARRATIVE: CASE EVENT DATE: 2015
